FAERS Safety Report 8597017 (Version 3)
Quarter: 2013Q4

REPORT INFORMATION
  Report Type: Spontaneous
  Country: US (occurrence: US)
  Receive Date: 20120605
  Receipt Date: 20131129
  Transmission Date: 20140711
  Serious: Yes (Hospitalization, Disabling, Other)
  Sender: FDA-Public Use
  Company Number: US-ASTRAZENECA-2012SE34777

PATIENT
  Age: 58 Year
  Sex: Male

DRUGS (15)
  1. NEXIUM [Suspect]
     Indication: GASTROOESOPHAGEAL REFLUX DISEASE
     Route: 048
     Dates: start: 2006
  2. NEXIUM [Suspect]
     Indication: GASTROOESOPHAGEAL REFLUX DISEASE
     Route: 048
     Dates: start: 2007
  3. METFORMIN [Concomitant]
     Indication: DIABETES MELLITUS
  4. NAPROXON [Concomitant]
     Indication: BACK PAIN
  5. TRAMADOL [Concomitant]
     Indication: BACK PAIN
  6. TYLENOL [Concomitant]
     Indication: BACK PAIN
  7. CODEINE [Concomitant]
  8. AMLODIPINE [Concomitant]
     Indication: BLOOD PRESSURE
  9. TADALAFIL [Concomitant]
     Indication: ERECTILE DYSFUNCTION
  10. PROSEAR [Concomitant]
     Indication: PROSTATE CANCER
  11. FLONCSE [Concomitant]
     Indication: HYPERSENSITIVITY
  12. GABAPENTOAL [Concomitant]
     Indication: HYPOAESTHESIA
  13. PERCOCET [Concomitant]
     Indication: PAIN
  14. OXYBUTYNAL [Concomitant]
     Indication: PROSTATE CANCER
  15. LISINOPRIL [Concomitant]
     Indication: BLOOD PRESSURE

REACTIONS (20)
  - Back disorder [Unknown]
  - Neoplasm malignant [Unknown]
  - Osteoporosis [Unknown]
  - Multiple fractures [Unknown]
  - Foot fracture [Unknown]
  - Swelling [Unknown]
  - Musculoskeletal pain [Unknown]
  - Spinal pain [Unknown]
  - Pain in extremity [Unknown]
  - Bone pain [Unknown]
  - Calcium deficiency [Unknown]
  - Cataract [Unknown]
  - Arthritis [Unknown]
  - Diabetes mellitus [Unknown]
  - Liver disorder [Unknown]
  - Vitamin D deficiency [Unknown]
  - Haemophilia [Unknown]
  - Spinal osteoarthritis [Unknown]
  - Intervertebral disc protrusion [Unknown]
  - Arthralgia [Unknown]
